FAERS Safety Report 4776422-6 (Version None)
Quarter: 2005Q3

REPORT INFORMATION
  Report Type: 
  Country: None (occurrence: None)
  Receive Date: 20050915
  Receipt Date: 20050906
  Transmission Date: 20060218
  Serious: Yes (Hospitalization)
  Sender: FDA-Public Use
  Company Number: 2005-08-1912

PATIENT
  Age: 50 Year
  Sex: Female

DRUGS (13)
  1. CELESTONE [Suspect]
     Dosage: SEE IMAGE
     Route: 048
     Dates: start: 20050815, end: 20040814
  2. CELESTONE [Suspect]
     Dosage: SEE IMAGE
     Route: 048
     Dates: start: 20050808, end: 20050814
  3. CELESTONE [Suspect]
     Dosage: SEE IMAGE
     Route: 048
     Dates: start: 20050808, end: 20050819
  4. MEXAZOLAM ORAL, NOT OTHERWISE SPECIFIED [Suspect]
     Dosage: SEE IMAGE
     Route: 048
     Dates: start: 20050808, end: 20050814
  5. MEXAZOLAM ORAL, NOT OTHERWISE SPECIFIED [Suspect]
     Dosage: SEE IMAGE
     Route: 048
     Dates: start: 20050808, end: 20050819
  6. MEXAZOLAM ORAL, NOT OTHERWISE SPECIFIED [Suspect]
     Dosage: SEE IMAGE
     Route: 048
     Dates: start: 20050815, end: 20050819
  7. AMOXAPINE ORAL, NOT OTHERWISE SPECIFIED [Suspect]
     Dosage: SEE IMAGE
     Route: 048
     Dates: start: 20050808, end: 20050814
  8. AMOXAPINE ORAL, NOT OTHERWISE SPECIFIED [Suspect]
     Dosage: SEE IMAGE
     Route: 048
     Dates: start: 20050808, end: 20050819
  9. AMOXAPINE ORAL, NOT OTHERWISE SPECIFIED [Suspect]
     Dosage: SEE IMAGE
     Route: 048
     Dates: start: 20050815, end: 20050819
  10. TIZANIDINE HYDROCHLORIDE ORAL, NOT OTHERWISE SPECIFIED [Suspect]
     Dosage: 3 MG/D ORAL
     Route: 048
     Dates: start: 20050808, end: 20050814
  11. BERAPROST ORAL, NOT OTHERWISE SPECIFIED [Suspect]
     Dosage: 60 MCG-MG/D ORAL
     Route: 048
     Dates: start: 20050808, end: 20050814
  12. ETHYL ICOSAPENTATE TABLETS [Suspect]
     Dosage: 900MG/DAY ORAL
     Route: 048
     Dates: start: 20050815, end: 20050819
  13. HERBAL MEDICATION NOS ORAL, NOT OTHERWISE SPECIFIED [Suspect]
     Dosage: 2G/D ORAL
     Route: 048
     Dates: start: 20050808, end: 20050819

REACTIONS (8)
  - ALANINE AMINOTRANSFERASE INCREASED [None]
  - ASPARTATE AMINOTRANSFERASE INCREASED [None]
  - ERYTHEMA MULTIFORME [None]
  - FEELING HOT [None]
  - FLUSHING [None]
  - HEPATIC FUNCTION ABNORMAL [None]
  - PYREXIA [None]
  - RASH [None]
